FAERS Safety Report 5813698-8 (Version None)
Quarter: 2008Q3

REPORT INFORMATION
  Report Type: 
  Country: None (occurrence: None)
  Receive Date: 20080716
  Receipt Date: 20080716
  Transmission Date: 20090109
  Serious: Yes (Hospitalization)
  Sender: FDA-Public Use
  Company Number: None

PATIENT
  Sex: Male
  Weight: 56.6996 kg

DRUGS (1)
  1. TAXOL [Suspect]
     Indication: PANCREATIC CARCINOMA
     Dosage: 105. MG IVPB D1, 8, 15 IVP (STILL ON STUDY AND ON TREATMENT)
     Route: 042
     Dates: start: 20071105, end: 20080505

REACTIONS (5)
  - BLOOD CULTURE POSITIVE [None]
  - DRUG TOXICITY [None]
  - NEUTROPENIA [None]
  - PYREXIA [None]
  - STREPTOCOCCAL INFECTION [None]
